FAERS Safety Report 16031469 (Version 3)
Quarter: 2019Q2

REPORT INFORMATION
  Report Type: Spontaneous
  Country: US (occurrence: US)
  Receive Date: 20190304
  Receipt Date: 20190415
  Transmission Date: 20190711
  Serious: Yes (Other)
  Sender: FDA-Public Use
  Company Number: US-TEVA-2019-US-1020090

PATIENT
  Sex: Female

DRUGS (2)
  1. EQUATE INFANTS IBUPROFEN TEVA [Suspect]
     Active Substance: IBUPROFEN
     Route: 065
  2. EQUATE INFANTS IBUPROFEN TEVA [Suspect]
     Active Substance: IBUPROFEN
     Route: 065

REACTIONS (3)
  - Diarrhoea [Unknown]
  - Recalled product administered [Unknown]
  - Infantile vomiting [Unknown]
